FAERS Safety Report 7494529-X (Version None)
Quarter: 2011Q2

REPORT INFORMATION
  Report Type: 
  Country: None (occurrence: None)
  Receive Date: 20110520
  Receipt Date: 20110509
  Transmission Date: 20111010
  Serious: Yes (Other)
  Sender: FDA-Public Use
  Company Number: PHHY2011CA40540

PATIENT
  Sex: Female

DRUGS (2)
  1. AFINITOR [Suspect]
     Indication: SMALL INTESTINE CARCINOMA
     Dosage: 10 MG, DAILY
     Route: 048
     Dates: start: 20110322, end: 20110507
  2. SANDOSTATIN LAR [Suspect]
     Indication: SMALL INTESTINE CARCINOMA
     Dosage: 40 MG, EVERY 3 WEEKS
     Route: 030
     Dates: start: 20090313

REACTIONS (2)
  - STOMATITIS [None]
  - FATIGUE [None]
